FAERS Safety Report 9361955 (Version 4)
Quarter: 2020Q2

REPORT INFORMATION
  Report Type: Report from Study
  Country: US (occurrence: US)
  Receive Date: 20130621
  Receipt Date: 20200630
  Transmission Date: 20200714
  Serious: Yes (Other)
  Sender: FDA-Public Use
  Company Number: US-VERTEX PHARMACEUTICALS INC-2013-007318

PATIENT
  Age: 48 Year
  Sex: Female

DRUGS (4)
  1. KALYDECO [Suspect]
     Active Substance: IVACAFTOR
     Dosage: HALF DOSE
     Route: 048
     Dates: start: 201304
  2. KALYDECO [Suspect]
     Active Substance: IVACAFTOR
     Dosage: 1 DF, QD
     Route: 048
     Dates: start: 20160727
  3. KALYDECO [Suspect]
     Active Substance: IVACAFTOR
     Dosage: FULL DOSE
     Route: 048
  4. KALYDECO [Suspect]
     Active Substance: IVACAFTOR
     Indication: CYSTIC FIBROSIS
     Dosage: UNK
     Route: 048
     Dates: start: 20120215, end: 201304

REACTIONS (8)
  - Weight increased [Unknown]
  - Sinus operation [Unknown]
  - Rhinorrhoea [Unknown]
  - Hepatic enzyme increased [Unknown]
  - Gastrointestinal disorder [Unknown]
  - Rash [Recovered/Resolved]
  - Constipation [Unknown]
  - Hypoglycaemia [Not Recovered/Not Resolved]

NARRATIVE: CASE EVENT DATE: 201203
